FAERS Safety Report 5525038-2 (Version None)
Quarter: 2007Q4

REPORT INFORMATION
  Report Type: 
  Country: None (occurrence: None)
  Receive Date: 20071126
  Receipt Date: 20071116
  Transmission Date: 20080405
  Serious: Yes (Hospitalization, Disabling)
  Sender: FDA-Public Use
  Company Number: US-JNJFOC-20070302352

PATIENT
  Sex: Female
  Weight: 63.5 kg

DRUGS (2)
  1. ORTHO EVRA [Suspect]
     Indication: CONTRACEPTION
     Route: 062
  2. IMITREX [Concomitant]
     Indication: MIGRAINE

REACTIONS (6)
  - ARTERY DISSECTION [None]
  - CEREBELLAR INFARCTION [None]
  - COMA [None]
  - LOCKED-IN SYNDROME [None]
  - PNEUMONIA [None]
  - RESPIRATORY FAILURE [None]
